FAERS Safety Report 9365021 (Version 1)
Quarter: 2013Q2

REPORT INFORMATION
  Report Type: Spontaneous
  Country: US (occurrence: US)
  Receive Date: 20130624
  Receipt Date: 20130624
  Transmission Date: 20140414
  Serious: No
  Sender: FDA-Public Use
  Company Number: US-PFIZER INC-2013184423

PATIENT
  Age: 55 Year
  Sex: Female
  Weight: 74.38 kg

DRUGS (2)
  1. EFFEXOR XR [Suspect]
     Indication: MAJOR DEPRESSION
     Dosage: 225 MG (TAKING 150MG AND 75MG TO TAKE TOTAL DOSE OF 225MG), 1X/DAY
     Route: 048
  2. BUPROPION [Concomitant]
     Dosage: 300 MG, 1X/DAY

REACTIONS (1)
  - Arthritis [Unknown]
